FAERS Safety Report 8492725-6 (Version None)
Quarter: 2012Q3

REPORT INFORMATION
  Report Type: 
  Country: None (occurrence: None)
  Receive Date: 20120706
  Receipt Date: 20120702
  Transmission Date: 20120928
  Serious: Yes (Other)
  Sender: FDA-Public Use
  Company Number: AU-ROCHE-1084726

PATIENT
  Sex: Female

DRUGS (8)
  1. PANTOPRAZOLE SODIUM [Concomitant]
     Dates: start: 20120629
  2. PANTOPRAZOLE SODIUM [Concomitant]
     Dates: start: 20120629
  3. QVAR 40 [Concomitant]
  4. HRT NOS [Concomitant]
  5. COVASTIN [Concomitant]
  6. BION TEARS [Concomitant]
  7. VITAMIN D [Concomitant]
  8. ACTEMRA [Suspect]
     Indication: RHEUMATOID ARTHRITIS
     Dosage: VOLUME OF INFUSION 28 MG OR ML
     Dates: start: 20120607

REACTIONS (5)
  - LOWER RESPIRATORY TRACT INFECTION [None]
  - ABDOMINAL PAIN UPPER [None]
  - COUGH [None]
  - MUSCULOSKELETAL CHEST PAIN [None]
  - OROPHARYNGEAL PAIN [None]
